FAERS Safety Report 22883676 (Version 4)
Quarter: 2023Q4

REPORT INFORMATION
  Report Type: Spontaneous
  Country: CA (occurrence: CA)
  Receive Date: 20230830
  Receipt Date: 20231013
  Transmission Date: 20240110
  Serious: No
  Sender: FDA-Public Use
  Company Number: CA-PFIZER INC-202300240556

PATIENT
  Age: 22 Year
  Sex: Female

DRUGS (1)
  1. ABRILADA [Suspect]
     Active Substance: ADALIMUMAB-AFZB
     Indication: Hidradenitis
     Dosage: 1 DF (WK 0: 160 MG, WK 2: 80MG, THEN 40MG EVERY WK STARTING WK 4
     Route: 058
     Dates: start: 20230702, end: 2023

REACTIONS (9)
  - Injection site bruising [Unknown]
  - Injection site reaction [Unknown]
  - Anxiety [Unknown]
  - Fear of injection [Unknown]
  - Accidental exposure to product [Unknown]
  - Exposure via skin contact [Unknown]
  - Device dispensing error [Unknown]
  - Device deployment issue [Unknown]
  - Device occlusion [Unknown]

NARRATIVE: CASE EVENT DATE: 20230101
